FAERS Safety Report 9688271 (Version 2)
Quarter: 2013Q4

REPORT INFORMATION
  Report Type: Spontaneous
  Country: US (occurrence: US)
  Receive Date: 20131114
  Receipt Date: 20131114
  Transmission Date: 20140711
  Serious: Yes (Other)
  Sender: FDA-Public Use
  Company Number: US-ASTRAZENECA-2002UW15885

PATIENT
  Age: 64 Year
  Sex: Female
  Weight: 47.2 kg

DRUGS (10)
  1. ATENOLOL [Suspect]
     Indication: HYPERTENSION
     Route: 048
  2. NEXIUM [Suspect]
     Indication: GASTROOESOPHAGEAL REFLUX DISEASE
     Route: 048
     Dates: start: 2002
  3. NEXIUM [Suspect]
     Indication: GASTROOESOPHAGEAL REFLUX DISEASE
     Route: 048
     Dates: start: 2002
  4. CENTRUMSILVER MULTIVITAMINS [Suspect]
     Dosage: ONCE DAILY
     Route: 048
  5. TENORMIN [Concomitant]
  6. PREMARIN [Concomitant]
  7. LEVOTHROID [Concomitant]
  8. ASA [Concomitant]
  9. VITAMIN [Concomitant]
  10. LOSARTAN [Concomitant]
     Indication: HYPERTENSION

REACTIONS (11)
  - Gastritis [Not Recovered/Not Resolved]
  - Rheumatoid arthritis [Not Recovered/Not Resolved]
  - Hypothyroidism [Not Recovered/Not Resolved]
  - Magnesium deficiency [Unknown]
  - Hearing impaired [Unknown]
  - Gastrooesophageal reflux disease [Not Recovered/Not Resolved]
  - Weight decreased [Unknown]
  - Hypertension [Unknown]
  - Mouth ulceration [Unknown]
  - Adverse event [Unknown]
  - Dyspepsia [Unknown]
